FAERS Safety Report 5536681-9 (Version None)
Quarter: 2007Q4

REPORT INFORMATION
  Report Type: 
  Country: None (occurrence: None)
  Receive Date: 20071204
  Receipt Date: 20071203
  Transmission Date: 20080405
  Serious: Yes (Death, Hospitalization)
  Sender: FDA-Public Use
  Company Number: 2005S1009423

PATIENT
  Age: 20 Year
  Sex: Male

DRUGS (2)
  1. CYSTAGON [Suspect]
     Indication: CYSTINOSIS
     Dosage: ORAL ; 1800 MG;DAILY;ORAL
     Route: 048
     Dates: end: 20030401
  2. CYSTAGON [Suspect]
     Indication: CYSTINOSIS
     Dosage: ORAL ; 1800 MG;DAILY;ORAL
     Route: 048
     Dates: start: 20000108

REACTIONS (5)
  - DYSPHAGIA [None]
  - PNEUMONIA [None]
  - PNEUMONIA ASPIRATION [None]
  - SEPSIS [None]
  - TREATMENT NONCOMPLIANCE [None]
